FAERS Safety Report 16322607 (Version 9)
Quarter: 2020Q1

REPORT INFORMATION
  Report Type: Report from Study
  Country: US (occurrence: US)
  Receive Date: 20190516
  Receipt Date: 20200220
  Transmission Date: 20200409
  Serious: Yes (Hospitalization)
  Sender: FDA-Public Use
  Company Number: US-ACTELION-A-NJ2019-188429

PATIENT
  Age: 74 Year
  Sex: Female
  Weight: 75.28 kg

DRUGS (25)
  1. ARFORMOTEROL [Concomitant]
     Active Substance: ARFORMOTEROL
     Dosage: 15 MCG/2ML
  2. DOXYCYCLINE. [Concomitant]
     Active Substance: DOXYCYCLINE
     Dosage: 100 MG CAPSULE EVERY 12 HOURS
  3. PREDNISONE. [Concomitant]
     Active Substance: PREDNISONE
  4. OPSUMIT [Suspect]
     Active Substance: MACITENTAN
     Indication: PULMONARY ARTERIAL HYPERTENSION
     Dosage: 10 MG, QD
     Route: 048
     Dates: start: 20140731
  5. ACETAMINOPHEN. [Concomitant]
     Active Substance: ACETAMINOPHEN
     Dosage: 650 MG EVERY 6 HOURS
  6. VITAMIN B COMPLEX [Concomitant]
     Active Substance: CYANOCOBALAMIN\DEXPANTHENOL\NIACINAMIDE\PYRIDOXINE HYDROCHLORIDE\RIBOFLAVIN 5^-PHOSPHATE SODIUM\THIAMINE HYDROCHLORIDE\VITAMIN B COMPLEX
     Dosage: 1 TABLET QD
     Route: 048
  7. FISH OIL W/VITAMIN D NOS [Concomitant]
  8. LOPERAMIDE [Concomitant]
     Active Substance: LOPERAMIDE
  9. OMEPRAZOLE. [Concomitant]
     Active Substance: OMEPRAZOLE
     Dosage: 20 MG
  10. PROAIR RESPICLICK [Concomitant]
     Active Substance: ALBUTEROL SULFATE
     Dosage: INHALE 2 PUFFS EVERY 6 HOURS
  11. OCUVITE [Concomitant]
     Active Substance: VITAMINS
  12. OXYGEN. [Concomitant]
     Active Substance: OXYGEN
  13. UPTRAVI [Suspect]
     Active Substance: SELEXIPAG
     Indication: PULMONARY ARTERIAL HYPERTENSION
     Dosage: 1600 MCG, BID
     Route: 048
     Dates: start: 20180930
  14. XARELTO [Concomitant]
     Active Substance: RIVAROXABAN
  15. DIAZEPAM. [Concomitant]
     Active Substance: DIAZEPAM
     Dosage: 2.5 MG
  16. ESCITALOPRAM [Concomitant]
     Active Substance: ESCITALOPRAM OXALATE
     Dosage: 20 MG, QD
     Route: 048
  17. FLUTICASONE PROPIONATE. [Concomitant]
     Active Substance: FLUTICASONE PROPIONATE
     Dosage: 50 MCG
  18. DUONEB [Concomitant]
     Active Substance: ALBUTEROL SULFATE\IPRATROPIUM BROMIDE
  19. GUAIFENESIN. [Concomitant]
     Active Substance: GUAIFENESIN
     Dosage: 10ML EVERY FOUR HOURS
  20. CALCIUM CARBONATE AND VITAMIN D [Concomitant]
     Active Substance: CALCIUM CARBONATE\VITAMIN D
     Dosage: 600 MG, BID
     Route: 048
  21. CYANOCOBALAMIN. [Concomitant]
     Active Substance: CYANOCOBALAMIN
     Dosage: 1000 MG, QD
     Route: 048
  22. SYNTHROID [Concomitant]
     Active Substance: LEVOTHYROXINE SODIUM
  23. LORATADINE. [Concomitant]
     Active Substance: LORATADINE
     Dosage: 10 MG
  24. CARBOXYMETHYLCELLULOSE [Concomitant]
     Active Substance: CARBOXYMETHYLCELLULOSE
  25. BUDESONIDE. [Concomitant]
     Active Substance: BUDESONIDE
     Dosage: 0.5MG/2 ML

REACTIONS (14)
  - Pulmonary embolism [Unknown]
  - Malaise [Unknown]
  - Vomiting [Unknown]
  - Hospitalisation [Unknown]
  - Product administration error [Unknown]
  - Bronchitis [Unknown]
  - Dyspnoea exertional [Unknown]
  - Pneumonia [Unknown]
  - Pulmonary oedema [Unknown]
  - Dyspnoea [Unknown]
  - Chest pain [Unknown]
  - Cardiac failure congestive [Unknown]
  - Pulmonary vascular disorder [Unknown]
  - Catheterisation cardiac [Unknown]

NARRATIVE: CASE EVENT DATE: 20191231
